FAERS Safety Report 6294421-2 (Version None)
Quarter: 2009Q3

REPORT INFORMATION
  Report Type: 
  Country: None (occurrence: None)
  Receive Date: 20090803
  Receipt Date: 20090722
  Transmission Date: 20100115
  Serious: No
  Sender: FDA-Public Use
  Company Number: IE-ROCHE-645389

PATIENT
  Sex: Female

DRUGS (1)
  1. TAMIFLU [Suspect]
     Dosage: FREQUENCY REPORTED AS: DAILYX 10 DAYS.
     Route: 048
     Dates: start: 20090718

REACTIONS (2)
  - NO ADVERSE EVENT [None]
  - PREGNANCY [None]
